FAERS Safety Report 16113173 (Version 5)
Quarter: 2022Q1

REPORT INFORMATION
  Report Type: Report from Study
  Country: PT (occurrence: PT)
  Receive Date: 20190325
  Receipt Date: 20220110
  Transmission Date: 20220423
  Serious: Yes (Hospitalization)
  Sender: FDA-Public Use
  Company Number: PT-ROCHE-1985184

PATIENT
  Age: 60 Year
  Sex: Female

DRUGS (16)
  1. DOCETAXEL [Suspect]
     Active Substance: DOCETAXEL
     Indication: Breast cancer metastatic
     Dosage: 75 MG, EVERY 3 WEEKS (MOST RECENT DOSE PRIOR TO EVENT : 04MAY2017)
     Route: 042
     Dates: start: 20170120
  2. DOCETAXEL [Suspect]
     Active Substance: DOCETAXEL
     Dosage: 115.05 MG, CYCLIC, EVERY 2 WEEKS
     Route: 042
     Dates: start: 20170121, end: 20170323
  3. DOCETAXEL [Suspect]
     Active Substance: DOCETAXEL
     Dosage: 115.05 MG
     Route: 042
     Dates: start: 20170504, end: 20170614
  4. PERTUZUMAB [Suspect]
     Active Substance: PERTUZUMAB
     Indication: Breast cancer metastatic
     Dosage: 420 MG, EVERY 3 WEEKS
     Route: 042
     Dates: start: 20170213, end: 20170323
  5. PERTUZUMAB [Suspect]
     Active Substance: PERTUZUMAB
     Dosage: 420 MG, EVERY 3 WEEKS
     Route: 042
     Dates: start: 20170504, end: 20170731
  6. TRASTUZUMAB [Suspect]
     Active Substance: TRASTUZUMAB
     Indication: Breast cancer metastatic
     Dosage: 600 MG, EVERY 3 WEEKS
     Route: 042
     Dates: start: 20170120, end: 20170323
  7. TRASTUZUMAB [Suspect]
     Active Substance: TRASTUZUMAB
     Dosage: 600 MG, EVERY 3 WEEKS
     Route: 042
     Dates: start: 20170504, end: 20170830
  8. TRASTUZUMAB [Suspect]
     Active Substance: TRASTUZUMAB
     Dosage: 600 MG, EVERY 3 WEEKS
     Route: 042
     Dates: start: 20171010, end: 20180102
  9. TRASTUZUMAB [Suspect]
     Active Substance: TRASTUZUMAB
     Dosage: 600 MG, EVERY 3 WEEKS
     Route: 042
     Dates: start: 20180221, end: 20181218
  10. TRASTUZUMAB [Suspect]
     Active Substance: TRASTUZUMAB
     Dosage: 600 MG
     Route: 042
     Dates: start: 20190116
  11. OMEPRAZOLE [Concomitant]
     Active Substance: OMEPRAZOLE
     Dosage: UNK
     Route: 065
     Dates: start: 20170615
  12. OLANZAPINE [Concomitant]
     Active Substance: OLANZAPINE
     Dosage: UNK
     Route: 065
     Dates: start: 20170615, end: 20190401
  13. PIPERACILLIN [Concomitant]
     Active Substance: PIPERACILLIN
     Indication: Large intestine infection
     Dosage: UNK
     Route: 065
  14. TAZOBACTAM [Concomitant]
     Active Substance: TAZOBACTAM
     Indication: Large intestine infection
     Dosage: UNK
     Route: 065
     Dates: start: 20170617, end: 20170623
  15. ZOLEDRONIC ACID [Concomitant]
     Active Substance: ZOLEDRONIC ACID
     Dosage: 5 MG, EVERY 3 WEEKS
     Route: 042
     Dates: start: 20190221
  16. ZOLEDRONIC ACID [Concomitant]
     Active Substance: ZOLEDRONIC ACID
     Dosage: 5 MG, EVERY 3 WEEKS
     Route: 042
     Dates: start: 20180830, end: 20190116

REACTIONS (6)
  - Diarrhoea [Recovering/Resolving]
  - Ejection fraction decreased [Recovered/Resolved]
  - Colitis [Recovered/Resolved]
  - Large intestine infection [Recovered/Resolved]
  - General physical health deterioration [Recovered/Resolved]
  - Ejection fraction decreased [Recovered/Resolved]

NARRATIVE: CASE EVENT DATE: 20170413
